FAERS Safety Report 7691685-5 (Version None)
Quarter: 2011Q3

REPORT INFORMATION
  Report Type: 
  Country: None (occurrence: None)
  Receive Date: 20110818
  Receipt Date: 20110727
  Transmission Date: 20111222
  Serious: Yes (Hospitalization)
  Sender: FDA-Public Use
  Company Number: US-GLAXOSMITHKLINE-A0839780A

PATIENT
  Age: 54 Year
  Sex: Female
  Weight: 68.6 kg

DRUGS (7)
  1. VYTORIN [Concomitant]
  2. AVANDIA [Suspect]
     Indication: DIABETES MELLITUS
     Dosage: 4MG PER DAY
     Route: 048
     Dates: start: 20030820, end: 20050422
  3. LASIX [Concomitant]
  4. TOPROL-XL [Concomitant]
  5. GLIPIZIDE [Concomitant]
  6. CLONIDINE [Concomitant]
  7. AVANDAMET [Suspect]
     Indication: DIABETES MELLITUS
     Route: 048
     Dates: start: 20021112

REACTIONS (3)
  - PANIC ATTACK [None]
  - CEREBROVASCULAR ACCIDENT [None]
  - DEPRESSION [None]
